FAERS Safety Report 17477140 (Version 1)
Quarter: 2020Q1

REPORT INFORMATION
  Report Type: Report from Study
  Country: CO (occurrence: CO)
  Receive Date: 20200228
  Receipt Date: 20200228
  Transmission Date: 20200409
  Serious: Yes (Other)
  Sender: FDA-Public Use
  Company Number: CO-JNJFOC-20191134708

PATIENT
  Age: 51 Year
  Sex: Male
  Weight: 76 kg

DRUGS (3)
  1. STELARA [Suspect]
     Active Substance: USTEKINUMAB
     Dosage: 45 MG/0,5 ML?45 MG SC EVERY 12 WEEKS; 45 MG SC ON WEEK 0; 45 MG SC ON WEEK 4
     Route: 058
     Dates: start: 20190705
  2. STELARA [Suspect]
     Active Substance: USTEKINUMAB
     Indication: PSORIASIS
     Dosage: 45 MG/0,5 ML?45 MG SC EVERY 12 WEEKS; 45 MG SC ON WEEK 0; 45 MG SC ON WEEK 4
     Route: 058
     Dates: start: 20160326, end: 20170514
  3. STELARA [Suspect]
     Active Substance: USTEKINUMAB
     Dosage: 45 MG/0,5 ML?45 MG SC EVERY 12 WEEKS; 45 MG SC ON WEEK 0; 45 MG SC ON WEEK 4
     Route: 058
     Dates: start: 20190524

REACTIONS (4)
  - Blood cholesterol increased [Recovering/Resolving]
  - Pruritus [Recovering/Resolving]
  - Blood triglycerides increased [Recovering/Resolving]
  - Dizziness [Recovering/Resolving]

NARRATIVE: CASE EVENT DATE: 201907
